FAERS Safety Report 10278164 (Version 1)
Quarter: 2014Q3

REPORT INFORMATION
  Report Type: Spontaneous
  Country: BR (occurrence: BR)
  Receive Date: 20140704
  Receipt Date: 20140704
  Transmission Date: 20150326
  Serious: Yes (Hospitalization, Other)
  Sender: FDA-Public Use
  Company Number: PHHY2014BR082082

PATIENT
  Age: 71 Year
  Sex: Male
  Weight: 52 kg

DRUGS (34)
  1. APRESOLIN [Suspect]
     Active Substance: HYDRALAZINE HYDROCHLORIDE
     Indication: OFF LABEL USE
  2. DIOVAN AMLO FIX [Suspect]
     Active Substance: AMLODIPINE\VALSARTAN
     Indication: RENAL FAILURE CHRONIC
  3. AMLODIPINE [Suspect]
     Active Substance: AMLODIPINE BESYLATE
     Indication: HYPERTENSION
     Dosage: 2 TABLETS (10 MG), DAILY
     Route: 048
     Dates: start: 2011
  4. DOMPERIDONE [Suspect]
     Active Substance: DOMPERIDONE
     Indication: HYPERTENSION
     Dosage: 2 TABLETS (10 MG), DAILY
     Route: 048
     Dates: start: 2011
  5. APRESOLIN [Suspect]
     Active Substance: HYDRALAZINE HYDROCHLORIDE
     Indication: HYPERTENSION
     Dosage: 3 TABLETS (25 MG), DAILY
     Route: 048
     Dates: start: 2011
  6. ONBREZ [Suspect]
     Active Substance: INDACATEROL
     Indication: CHRONIC OBSTRUCTIVE PULMONARY DISEASE
     Dosage: 1 CAPSULE (150 MCG), DAILY
     Route: 055
     Dates: start: 2011
  7. AMLODIPINE [Suspect]
     Active Substance: AMLODIPINE BESYLATE
     Indication: RENAL FAILURE CHRONIC
  8. FOLIC ACID. [Suspect]
     Active Substance: FOLIC ACID
     Indication: OFF LABEL USE
  9. SPIRIVA [Suspect]
     Active Substance: TIOTROPIUM BROMIDE MONOHYDRATE
     Indication: CHRONIC OBSTRUCTIVE PULMONARY DISEASE
     Dosage: 1 CAPSULE, DAILY
     Route: 055
  10. SINGULAIR [Suspect]
     Active Substance: MONTELUKAST SODIUM
     Indication: HYPERTENSION
     Dosage: 1 TABLET (10 MG), DAILY
     Route: 048
     Dates: start: 2011
  11. SINGULAIR [Suspect]
     Active Substance: MONTELUKAST SODIUM
     Indication: OFF LABEL USE
  12. VITAMIN B COMPLEX [Suspect]
     Active Substance: CYANOCOBALAMIN\DEXPANTHENOL\NIACINAMIDE\PYRIDOXINE HYDROCHLORIDE\RIBOFLAVIN 5^-PHOSPHATE SODIUM\THIAMINE HYDROCHLORIDE\VITAMIN B COMPLEX
     Indication: OFF LABEL USE
  13. SINGULAIR [Suspect]
     Active Substance: MONTELUKAST SODIUM
     Indication: RENAL FAILURE CHRONIC
  14. APRESOLIN [Suspect]
     Active Substance: HYDRALAZINE HYDROCHLORIDE
     Indication: RENAL FAILURE CHRONIC
     Dosage: 0.5 TABLETS (50 MG), DAILY
     Route: 048
     Dates: start: 2011
  15. AMLODIPINE [Suspect]
     Active Substance: AMLODIPINE BESYLATE
     Indication: OFF LABEL USE
  16. ENALAPRIL [Suspect]
     Active Substance: ENALAPRIL
     Dosage: 1 TABLET (20 MG), DAILY
  17. ENALAPRIL [Suspect]
     Active Substance: ENALAPRIL
     Dosage: 2 TABLET (10 MG), DAILY
  18. DAXAS [Suspect]
     Active Substance: ROFLUMILAST
     Indication: RENAL FAILURE CHRONIC
  19. DOMPERIDONE [Suspect]
     Active Substance: DOMPERIDONE
     Indication: OFF LABEL USE
  20. VITAMIN B COMPLEX [Suspect]
     Active Substance: CYANOCOBALAMIN\DEXPANTHENOL\NIACINAMIDE\PYRIDOXINE HYDROCHLORIDE\RIBOFLAVIN 5^-PHOSPHATE SODIUM\THIAMINE HYDROCHLORIDE\VITAMIN B COMPLEX
     Indication: RENAL FAILURE CHRONIC
  21. DIOVAN [Suspect]
     Active Substance: VALSARTAN
     Indication: OFF LABEL USE
  22. PANTOPRAZOLE [Suspect]
     Active Substance: PANTOPRAZOLE SODIUM
     Indication: HYPERTENSION
     Dosage: 1 TABLET (40 MG), DAILY
     Route: 048
     Dates: start: 2011
  23. DOMPERIDONE [Suspect]
     Active Substance: DOMPERIDONE
     Indication: RENAL FAILURE CHRONIC
  24. FOLIC ACID. [Suspect]
     Active Substance: FOLIC ACID
     Indication: HYPERTENSION
     Dosage: 1 TABLET (10 MG), DAILY
     Route: 048
     Dates: start: 2011
  25. DIOVAN AMLO FIX [Suspect]
     Active Substance: AMLODIPINE\VALSARTAN
     Indication: OFF LABEL USE
  26. PANTOPRAZOLE [Suspect]
     Active Substance: PANTOPRAZOLE SODIUM
     Indication: RENAL FAILURE CHRONIC
  27. DAXAS [Suspect]
     Active Substance: ROFLUMILAST
     Indication: HYPERTENSION
     Dosage: 1 TABLET, DAILY
     Route: 048
     Dates: start: 2011
  28. VITAMIN B COMPLEX [Suspect]
     Active Substance: CYANOCOBALAMIN\DEXPANTHENOL\NIACINAMIDE\PYRIDOXINE HYDROCHLORIDE\RIBOFLAVIN 5^-PHOSPHATE SODIUM\THIAMINE HYDROCHLORIDE\VITAMIN B COMPLEX
     Indication: HYPERTENSION
     Dosage: 3 TABLETS (10 MG), DAILY
     Route: 048
     Dates: start: 2011
  29. OXIMAX [Suspect]
     Active Substance: MOMETASONE FUROATE
     Indication: CHRONIC OBSTRUCTIVE PULMONARY DISEASE
     Dosage: 1 CAPSULE (400 MG), DAILY
     Route: 055
  30. DIOVAN [Suspect]
     Active Substance: VALSARTAN
     Indication: HYPERTENSION
     Dosage: 2 TABLETS (160 MG), DAILY
     Route: 048
     Dates: start: 2011
  31. DIOVAN [Suspect]
     Active Substance: VALSARTAN
     Indication: RENAL FAILURE CHRONIC
  32. DIOVAN AMLO FIX [Suspect]
     Active Substance: AMLODIPINE\VALSARTAN
     Indication: HYPERTENSION
     Dosage: 1 TABL;ET (320/10 MG), DAILY
     Route: 048
     Dates: end: 2011
  33. DAXAS [Suspect]
     Active Substance: ROFLUMILAST
     Indication: OFF LABEL USE
  34. FOLIC ACID. [Suspect]
     Active Substance: FOLIC ACID
     Indication: RENAL FAILURE CHRONIC

REACTIONS (2)
  - Hypertension [Recovered/Resolved]
  - Pneumonia [Recovered/Resolved]

NARRATIVE: CASE EVENT DATE: 201309
